FAERS Safety Report 16277387 (Version 2)
Quarter: 2019Q3

REPORT INFORMATION
  Report Type: Spontaneous
  Country: US (occurrence: US)
  Receive Date: 20190506
  Receipt Date: 20190819
  Transmission Date: 20191004
  Serious: No
  Sender: FDA-Public Use
  Company Number: US-MYLANLABS-2019M1039640

PATIENT
  Age: 61 Year
  Sex: Female
  Weight: 52 kg

DRUGS (1)
  1. WIXELA INHUB [Suspect]
     Active Substance: FLUTICASONE PROPIONATE\SALMETEROL XINAFOATE
     Indication: ASTHMA
     Dosage: UNK UNK, BID (IN THE MORNING AND AT NIGHT)
     Route: 055
     Dates: start: 20190417, end: 20190417

REACTIONS (3)
  - Hypersensitivity [Unknown]
  - Product packaging issue [Unknown]
  - Dyspnoea [Recovered/Resolved]

NARRATIVE: CASE EVENT DATE: 20190417
